FAERS Safety Report 9892400 (Version 3)
Quarter: 2014Q1

REPORT INFORMATION
  Report Type: Report from Study
  Country: NZ (occurrence: NZ)
  Receive Date: 20140212
  Receipt Date: 20140327
  Transmission Date: 20141002
  Serious: Yes (Death)
  Sender: FDA-Public Use
  Company Number: PHHY2014NZ016669

PATIENT
  Sex: Male

DRUGS (1)
  1. CLOZARIL [Suspect]
     Dosage: UNK
     Dates: start: 20130820

REACTIONS (4)
  - Parkinson^s disease [Fatal]
  - Malnutrition [Fatal]
  - Pneumonia aspiration [Fatal]
  - Pneumonia [Fatal]
